FAERS Safety Report 19504093 (Version 1)
Quarter: 2021Q3

REPORT INFORMATION
  Report Type: Spontaneous
  Country: US (occurrence: US)
  Receive Date: 20210707
  Receipt Date: 20210707
  Transmission Date: 20211014
  Serious: Yes (Other)
  Sender: FDA-Public Use
  Company Number: US-CADILA HEALTHCARE LIMITED-US-ZYDUS-067434

PATIENT

DRUGS (13)
  1. MORPHINE [Suspect]
     Active Substance: MORPHINE
     Dosage: 9/2.2 MG, PTM 0.1 MG EVERY 8 HRS AS NEEDED
     Route: 037
     Dates: start: 20180925
  2. MORPHINE [Suspect]
     Active Substance: MORPHINE
     Dosage: 2 MG, PTM 0.1 MG EVERY 8 HRS AS NEEDED
     Route: 037
     Dates: start: 20180726
  3. MORPHINE [Suspect]
     Active Substance: MORPHINE
     Dosage: 2.42 MG, PTM 0.1 MG EVERY 8 HRS AS NEEDED
     Route: 037
     Dates: start: 20181009
  4. MORPHINE [Suspect]
     Active Substance: MORPHINE
     Dosage: 1.2 MILLIGRAM, QD
     Route: 037
     Dates: start: 20171229
  5. MORPHINE [Suspect]
     Active Substance: MORPHINE
     Dosage: 1.89, PTM 0.095 MG EVERY 8 HRS AS NEEDED
     Route: 037
     Dates: start: 20180613
  6. OXYCODONE HYDROCHLORIDE. [Suspect]
     Active Substance: OXYCODONE HYDROCHLORIDE
     Indication: CANCER PAIN
     Dosage: 30 MILLIGRAM EVERY 3 HOUR
     Route: 065
  7. MORPHINE [Suspect]
     Active Substance: MORPHINE
     Indication: CANCER PAIN
     Dosage: 40 MICROGRAM PER HOUR
     Route: 037
  8. MORPHINE [Suspect]
     Active Substance: MORPHINE
     Dosage: 50 MICROGRAM PER HOUR
     Route: 037
  9. GABAPENTIN. [Suspect]
     Active Substance: GABAPENTIN
     Indication: CANCER PAIN
     Dosage: 800 MILLIGRAM, TID
     Route: 065
  10. MORPHINE [Suspect]
     Active Substance: MORPHINE
     Dosage: 1.439 MILLIGRAM, QD
     Route: 037
     Dates: start: 20180206
  11. METHADONE [Suspect]
     Active Substance: METHADONE HYDROCHLORIDE
     Indication: CANCER PAIN
     Dosage: 40 MILLIGRAM, QD
     Route: 065
  12. MORPHINE [Suspect]
     Active Substance: MORPHINE
     Dosage: 1.726 MILLIGRAM, QD
     Route: 037
     Dates: start: 20180417
  13. DULOXETINE. [Suspect]
     Active Substance: DULOXETINE
     Indication: CANCER PAIN
     Dosage: 60 MILLIGRAM, QD
     Route: 065

REACTIONS (2)
  - Arachnoiditis [Recovering/Resolving]
  - Drug ineffective [Recovering/Resolving]
